FAERS Safety Report 23630014 (Version 1)
Quarter: 2024Q1

REPORT INFORMATION
  Report Type: Spontaneous
  Country: US (occurrence: US)
  Receive Date: 20240314
  Receipt Date: 20240314
  Transmission Date: 20240410
  Serious: No
  Sender: FDA-Public Use
  Company Number: US-E2BLSMVVAL-SPO/USA/24/0003736

PATIENT
  Age: 48 Year
  Sex: Female

DRUGS (2)
  1. ACCUTANE [Suspect]
     Active Substance: ISOTRETINOIN
     Indication: Acne
     Route: 065
     Dates: start: 20230801, end: 20230901
  2. ACCUTANE [Suspect]
     Active Substance: ISOTRETINOIN
     Dates: start: 20230801, end: 20230901

REACTIONS (3)
  - Dry skin [Unknown]
  - Lip haemorrhage [Unknown]
  - Lip dry [Unknown]

NARRATIVE: CASE EVENT DATE: 20230901
